FAERS Safety Report 6445359-9 (Version None)
Quarter: 2009Q4

REPORT INFORMATION
  Report Type: 
  Country: None (occurrence: None)
  Receive Date: 20091118
  Receipt Date: 20091112
  Transmission Date: 20100525
  Serious: Yes (Hospitalization)
  Sender: FDA-Public Use
  Company Number: FR-ABBOTT-09P-056-0602516-00

PATIENT
  Sex: Male
  Weight: 70 kg

DRUGS (6)
  1. HUMIRA [Suspect]
     Indication: RHEUMATOID ARTHRITIS
     Route: 058
     Dates: start: 20090901
  2. CORTANCYL [Suspect]
     Indication: RHEUMATOID ARTHRITIS
     Route: 048
     Dates: start: 20060101
  3. METOJECT [Concomitant]
     Indication: RHEUMATOID ARTHRITIS
     Route: 058
     Dates: start: 20070101
  4. CORTANCYL [Concomitant]
     Route: 048
     Dates: start: 20090501
  5. RIFINAH [Concomitant]
     Indication: LABORATORY TEST ABNORMAL
     Route: 048
     Dates: start: 20090601, end: 20090901
  6. DIANTALVIC [Concomitant]
     Indication: PAIN
     Route: 048
     Dates: start: 20060101

REACTIONS (1)
  - PULMONARY EMBOLISM [None]
